FAERS Safety Report 9870239 (Version 1)
Quarter: 2014Q1

REPORT INFORMATION
  Report Type: Spontaneous
  Country: US (occurrence: None)
  Receive Date: 20140204
  Receipt Date: 20140204
  Transmission Date: 20141002
  Serious: Yes (Death)
  Sender: FDA-Public Use
  Company Number: None

PATIENT
  Age: 58 Year
  Sex: Male
  Weight: 117.94 kg

DRUGS (2)
  1. Z-PAK [Suspect]
     Indication: INFLUENZA LIKE ILLNESS
     Dosage: 5 DAU SUPPLY
     Route: 048
     Dates: start: 20130418, end: 20130422
  2. Z-PAK [Suspect]
     Indication: UNEVALUABLE EVENT
     Dosage: 5 DAU SUPPLY
     Route: 048
     Dates: start: 20130418, end: 20130422

REACTIONS (3)
  - Swelling [None]
  - Fall [None]
  - Myocardial infarction [None]
